FAERS Safety Report 12713881 (Version 2)
Quarter: 2016Q3

REPORT INFORMATION
  Report Type: Spontaneous
  Country: JP (occurrence: JP)
  Receive Date: 20160905
  Receipt Date: 20160919
  Transmission Date: 20161109
  Serious: Yes (Death)
  Sender: FDA-Public Use
  Company Number: JP-ROCHE-1824830

PATIENT
  Age: 77 Year
  Sex: Female
  Weight: 54 kg

DRUGS (6)
  1. GLIMEPIRIDE. [Concomitant]
     Active Substance: GLIMEPIRIDE
     Indication: TYPE 2 DIABETES MELLITUS
     Route: 048
     Dates: end: 20160614
  2. ALECENSA [Suspect]
     Active Substance: ALECTINIB HYDROCHLORIDE
     Indication: LUNG ADENOCARCINOMA
     Route: 048
     Dates: start: 20160325, end: 20160614
  3. OLMETEC [Concomitant]
     Active Substance: OLMESARTAN MEDOXOMIL
     Indication: HYPERTENSION
     Route: 048
     Dates: end: 20160614
  4. EQUA [Concomitant]
     Active Substance: VILDAGLIPTIN
     Indication: TYPE 2 DIABETES MELLITUS
     Route: 048
     Dates: end: 20160614
  5. CELECOX [Concomitant]
     Active Substance: CELECOXIB
     Indication: LUNG ADENOCARCINOMA
     Route: 048
     Dates: start: 20160520, end: 20160614
  6. AMLODIPIN [Concomitant]
     Active Substance: AMLODIPINE BESYLATE
     Indication: HYPERTENSION
     Route: 048
     Dates: end: 20160614

REACTIONS (2)
  - Pulmonary oedema [Fatal]
  - Respiratory failure [Fatal]

NARRATIVE: CASE EVENT DATE: 20160614
